FAERS Safety Report 19690946 (Version 2)
Quarter: 2021Q3

REPORT INFORMATION
  Report Type: Report from Study
  Country: US (occurrence: US)
  Receive Date: 20210812
  Receipt Date: 20210914
  Transmission Date: 20211014
  Serious: Yes (Hospitalization)
  Sender: FDA-Public Use
  Company Number: US-TAKEDA-2021TUS028049

PATIENT
  Age: 15 Year
  Sex: Female
  Weight: 48 kg

DRUGS (31)
  1. HUMAN NORMAL IMMUNOGLOBULIN; LIQUID [Suspect]
     Active Substance: HUMAN IMMUNOGLOBULIN G
     Indication: TRANSPLANT REJECTION
  2. TACROLIMUS. [Concomitant]
     Active Substance: TACROLIMUS
     Dosage: 1 DOSAGE FORM, Q12H
     Route: 048
  3. PREDNISONE. [Concomitant]
     Active Substance: PREDNISONE
     Dosage: 0.5 DOSAGE FORM, QD
     Route: 048
  4. AMLODIPINE [Concomitant]
     Active Substance: AMLODIPINE BESYLATE
     Dosage: 2 DOSAGE FORM, QD
     Route: 048
  5. FERROUS SULFATE. [Concomitant]
     Active Substance: FERROUS SULFATE
     Dosage: 1 DOSAGE FORM, QD
     Route: 048
  6. HUMAN NORMAL IMMUNOGLOBULIN; LIQUID [Suspect]
     Active Substance: HUMAN IMMUNOGLOBULIN G
     Indication: HEART TRANSPLANT REJECTION
  7. KLOR?CON [Concomitant]
     Active Substance: POTASSIUM CHLORIDE
     Dosage: UNK
     Route: 065
  8. TYLENOL A [Concomitant]
     Active Substance: ACETAMINOPHEN
     Route: 065
  9. PRAVASTATIN. [Concomitant]
     Active Substance: PRAVASTATIN
     Dosage: 1 DOSAGE FORM, QD
     Route: 048
  10. HUMAN NORMAL IMMUNOGLOBULIN; LIQUID [Suspect]
     Active Substance: HUMAN IMMUNOGLOBULIN G
     Indication: HEART TRANSPLANT
     Dosage: 45 GRAM, Q3WEEKS
     Route: 042
  11. HUMAN NORMAL IMMUNOGLOBULIN; LIQUID [Suspect]
     Active Substance: HUMAN IMMUNOGLOBULIN G
     Indication: PULMONARY ARTERIAL HYPERTENSION
  12. VALCYTE [Concomitant]
     Active Substance: VALGANCICLOVIR HYDROCHLORIDE
     Route: 065
  13. ASPIRIN [ACETYLSALICYLIC ACID] [Concomitant]
     Active Substance: ASPIRIN
     Dosage: 1 DOSAGE FORM, QD
     Route: 065
  14. SPIRONOLACTONE. [Concomitant]
     Active Substance: SPIRONOLACTONE
     Dosage: 2 DOSAGE FORM, BID
     Route: 048
  15. NORETHINDRONE ACETATE. [Concomitant]
     Active Substance: NORETHINDRONE ACETATE
     Dosage: 1 DOSAGE FORM, QD
     Route: 048
  16. VALGANCICLOVIR. [Concomitant]
     Active Substance: VALGANCICLOVIR
     Route: 065
  17. CHOLECALCIFEROL [Concomitant]
     Active Substance: CHOLECALCIFEROL
     Dosage: 1 DOSAGE FORM, QD
     Route: 048
  18. LASIX [Concomitant]
     Active Substance: FUROSEMIDE
     Dosage: UNK
     Route: 065
  19. IMURAN [Concomitant]
     Active Substance: AZATHIOPRINE
     Dosage: 1 DOSAGE FORM, QD
     Route: 048
  20. ALLOPURINOL. [Concomitant]
     Active Substance: ALLOPURINOL
     Route: 065
  21. TRAZODONE [Concomitant]
     Active Substance: TRAZODONE HYDROCHLORIDE
     Route: 065
  22. FUROSEMIDE. [Concomitant]
     Active Substance: FUROSEMIDE
     Dosage: 20 MILLIGRAM
     Route: 048
  23. NYSTATIN;TRIAMCINOLONE [Concomitant]
     Route: 065
  24. SIROLIMUS. [Concomitant]
     Active Substance: SIROLIMUS
     Dosage: 1 DOSAGE FORM, QD
     Route: 048
  25. ENALAPRIL [Concomitant]
     Active Substance: ENALAPRIL
     Route: 065
  26. BACTRIM [Concomitant]
     Active Substance: SULFAMETHOXAZOLE\TRIMETHOPRIM
     Dosage: 1 DOSAGE FORM, QD
     Route: 048
  27. MELATONIN [Concomitant]
     Active Substance: MELATONIN
     Route: 065
  28. VITAMIN D 2000 [Concomitant]
     Active Substance: VITAMIN D NOS
     Route: 065
  29. SILDENAFIL. [Concomitant]
     Active Substance: SILDENAFIL
     Dosage: 1 DOSAGE FORM, TID
     Route: 048
  30. OMEPRAZOLE. [Concomitant]
     Active Substance: OMEPRAZOLE
     Dosage: 1 DOSAGE FORM, QD
     Route: 048
  31. LISINOPRIL. [Concomitant]
     Active Substance: LISINOPRIL
     Dosage: 1 DOSAGE FORM, QD
     Route: 048

REACTIONS (3)
  - Off label use [Unknown]
  - COVID-19 [Recovered/Resolved]
  - Product dose omission issue [Unknown]

NARRATIVE: CASE EVENT DATE: 20210423
